FAERS Safety Report 18258929 (Version 3)
Quarter: 2020Q4

REPORT INFORMATION
  Report Type: Report from Study
  Country: US (occurrence: US)
  Receive Date: 20200911
  Receipt Date: 20201016
  Transmission Date: 20210113
  Serious: Yes (Hospitalization, Other)
  Sender: FDA-Public Use
  Company Number: US-JNJFOC-A-US2020-201866

PATIENT
  Age: 92 Year
  Sex: Female
  Weight: 53.57 kg

DRUGS (2)
  1. ADEMPAS [Concomitant]
     Active Substance: RIOCIGUAT
     Dosage: 2.5 MG
  2. OPSUMIT [Suspect]
     Active Substance: MACITENTAN
     Indication: PULMONARY ARTERIAL HYPERTENSION
     Dosage: 10 MG, QD
     Route: 048

REACTIONS (5)
  - Fluid retention [Not Recovered/Not Resolved]
  - Dyspnoea [Unknown]
  - Oedema peripheral [Recovering/Resolving]
  - Oedema [Unknown]
  - Pulmonary oedema [Unknown]
